FAERS Safety Report 19227271 (Version 2)
Quarter: 2022Q2

REPORT INFORMATION
  Report Type: Spontaneous
  Country: US (occurrence: None)
  Receive Date: 20210506
  Receipt Date: 20220426
  Transmission Date: 20220720
  Serious: No
  Sender: FDA-Public Use
  Company Number: US-ROCHE-2684839

PATIENT
  Age: 66 Year
  Sex: Female
  Weight: 112 kg

DRUGS (8)
  1. ESBRIET [Suspect]
     Active Substance: PIRFENIDONE
     Indication: Idiopathic pulmonary fibrosis
     Route: 048
     Dates: start: 20200709, end: 20200917
  2. ACYCLOVIR [Concomitant]
     Active Substance: ACYCLOVIR
  3. ELIQUIS [Concomitant]
     Active Substance: APIXABAN
     Dosage: 1 TABLET
     Route: 048
  4. ESBRIET [Concomitant]
     Active Substance: PIRFENIDONE
     Route: 048
  5. SYNTHROID [Concomitant]
     Active Substance: LEVOTHYROXINE SODIUM
     Dosage: 175 MCG
     Route: 048
  6. MINOCYCLINE [Concomitant]
     Active Substance: MINOCYCLINE HYDROCHLORIDE
     Indication: Ocular rosacea
     Dosage: DAILY AS NEEDED
     Route: 048
  7. TRENTAL [Concomitant]
     Active Substance: PENTOXIFYLLINE
     Route: 048
  8. TRULICITY [Concomitant]
     Active Substance: DULAGLUTIDE
     Indication: Diabetes mellitus
     Dosage: 1.5MG/0.5ML

REACTIONS (14)
  - Dyspnoea [Unknown]
  - Malaise [Unknown]
  - Diarrhoea [Unknown]
  - Rash [Unknown]
  - Nausea [Unknown]
  - Abdominal pain [Unknown]
  - Insomnia [Unknown]
  - Anxiety [Unknown]
  - Temperature intolerance [Unknown]
  - Increased tendency to bruise [Unknown]
  - Headache [Unknown]
  - Dizziness [Unknown]
  - Gait disturbance [Unknown]
  - Drug ineffective [Unknown]

NARRATIVE: CASE EVENT DATE: 20200917
